FAERS Safety Report 22365978 (Version 1)
Quarter: 2023Q2

REPORT INFORMATION
  Report Type: Spontaneous
  Country: VN (occurrence: VN)
  Receive Date: 20230525
  Receipt Date: 20230525
  Transmission Date: 20230721
  Serious: Yes (Other)
  Sender: FDA-Public Use
  Company Number: VN-MLMSERVICE-20230508-4274016-1

PATIENT
  Age: 76 Year
  Sex: Male

DRUGS (3)
  1. CISPLATIN [Suspect]
     Active Substance: CISPLATIN
     Indication: Hepatocellular carcinoma
  2. MITOMYCIN [Suspect]
     Active Substance: MITOMYCIN
     Indication: Hepatocellular carcinoma
  3. DOXORUBICIN [Suspect]
     Active Substance: DOXORUBICIN
     Indication: Hepatocellular carcinoma

REACTIONS (3)
  - Spinal cord ischaemia [Recovering/Resolving]
  - Spinal cord infarction [Recovering/Resolving]
  - Central nervous system vasculitis [Recovering/Resolving]
